FAERS Safety Report 6247743-5 (Version None)
Quarter: 2009Q2

REPORT INFORMATION
  Report Type: 
  Country: None (occurrence: None)
  Receive Date: 20090626
  Receipt Date: 20090622
  Transmission Date: 20091009
  Serious: Yes (Life-Threatening, Hospitalization)
  Sender: FDA-Public Use
  Company Number: PHHY2009FR25108

PATIENT
  Sex: Female

DRUGS (9)
  1. TRILEPTAL [Suspect]
     Indication: EPILEPSY
     Dosage: 150 MG, QD
     Dates: start: 20090526
  2. TRILEPTAL [Suspect]
     Dosage: 150 MG, BID
  3. EPITOMAX [Concomitant]
     Indication: EPILEPSY
  4. LAMICTAL [Concomitant]
     Indication: EPILEPSY
  5. URBANYL [Concomitant]
     Indication: EPILEPSY
  6. ADANCOR [Concomitant]
  7. CRESTOR [Concomitant]
  8. IRBESARTAN [Concomitant]
  9. ALLOPURINOL [Concomitant]

REACTIONS (6)
  - ATRIAL FIBRILLATION [None]
  - CARDIAC PACEMAKER INSERTION [None]
  - MALAISE [None]
  - PALLOR [None]
  - UNRESPONSIVE TO STIMULI [None]
  - VENTRICULAR ASYSTOLE [None]
